FAERS Safety Report 18654545 (Version 1)
Quarter: 2020Q4

REPORT INFORMATION
  Report Type: Spontaneous
  Country: US (occurrence: US)
  Receive Date: 20201223
  Receipt Date: 20201223
  Transmission Date: 20210114
  Serious: No
  Sender: FDA-Public Use
  Company Number: US-ELI_LILLY_AND_COMPANY-US202012010572

PATIENT
  Sex: Male
  Weight: 100.8 kg

DRUGS (2)
  1. REMDESIVIR. [Concomitant]
     Active Substance: REMDESIVIR
     Indication: PRODUCT USED FOR UNKNOWN INDICATION
     Dosage: UNK, UNKNOWN
     Route: 065
  2. BARICITINIB. [Suspect]
     Active Substance: BARICITINIB
     Indication: COVID-19
     Dosage: 4 MG, UNKNOWN
     Route: 065
     Dates: start: 20201204, end: 20201209

REACTIONS (1)
  - Off label use [Unknown]
